FAERS Safety Report 5280434-6 (Version None)
Quarter: 2007Q1

REPORT INFORMATION
  Report Type: 
  Country: None (occurrence: None)
  Receive Date: 20061229
  Receipt Date: 20061010
  Transmission Date: 20070707
  Serious: Yes (Other)
  Sender: FDA-Public Use
  Company Number: 2006UW16785

PATIENT
  Age: 61 Year
  Sex: Male
  Weight: 84.8226 kg

DRUGS (25)
  1. CRESTOR [Suspect]
     Indication: BLOOD CHOLESTEROL INCREASED
     Dosage: 10 MG HS;PO
     Route: 048
     Dates: start: 20051127, end: 20060601
  2. VERAPAMIL [Concomitant]
  3. LANOXIN [Concomitant]
  4. VASOTEC [Concomitant]
  5. NITROGLYCERIN [Concomitant]
  6. FLOVENT [Concomitant]
  7. CLARITIN [Concomitant]
  8. COUMADIN [Concomitant]
  9. ACETAMINOPHEN AND HYDROCODONE BITARTRATE [Concomitant]
  10. PRILOSEC [Concomitant]
  11. VIAGRA [Concomitant]
  12. ALPRAZOLAM [Concomitant]
  13. ALAVERT [Concomitant]
  14. DOCUSATE SODIUM [Concomitant]
  15. SINGULAIR [Concomitant]
  16. DIAZEPAM [Concomitant]
  17. ALBUTEROL [Concomitant]
  18. NASACORT AQ [Concomitant]
  19. MECLIZINE [Concomitant]
  20. BENADRYL [Concomitant]
  21. MUCINEX [Concomitant]
  22. VITAMIN CAP [Concomitant]
  23. VITAMIN B COMPLEX CAP [Concomitant]
  24. ESTER-C [Concomitant]
  25. POTASSIUM ACETATE [Concomitant]

REACTIONS (6)
  - ASTHENIA [None]
  - ATRIAL FIBRILLATION [None]
  - MUSCLE ATROPHY [None]
  - MYALGIA [None]
  - PALPITATIONS [None]
  - WEIGHT DECREASED [None]
